FAERS Safety Report 15659254 (Version 1)
Quarter: 2018Q4

REPORT INFORMATION
  Report Type: Spontaneous
  Country: ES (occurrence: ES)
  Receive Date: 20181127
  Receipt Date: 20181127
  Transmission Date: 20190205
  Serious: Yes (Other)
  Sender: FDA-Public Use
  Company Number: ES-ROCHE-2220394

PATIENT
  Age: 16 Day
  Sex: Female
  Weight: 3 kg

DRUGS (1)
  1. GANCICLOVIR. [Suspect]
     Active Substance: GANCICLOVIR
     Indication: CYTOMEGALOVIRUS TEST POSITIVE
     Route: 042
     Dates: start: 20181106

REACTIONS (3)
  - Neutropenia [Unknown]
  - Anaemia [Unknown]
  - Medication error [Unknown]

NARRATIVE: CASE EVENT DATE: 20181108
